FAERS Safety Report 23800290 (Version 2)
Quarter: 2024Q3

REPORT INFORMATION
  Report Type: Spontaneous
  Country: US (occurrence: US)
  Receive Date: 20240430
  Receipt Date: 20240709
  Transmission Date: 20241017
  Serious: No
  Sender: INCYTE
  Company Number: US-INCYTE CORPORATION-2024IN004396

PATIENT

DRUGS (2)
  1. JAKAFI [Suspect]
     Active Substance: RUXOLITINIB
     Indication: Polycythaemia vera
     Dosage: 10 MILLIGRAM, BID
     Route: 048
     Dates: start: 202403
  2. JAKAFI [Suspect]
     Active Substance: RUXOLITINIB
     Dosage: UNK, 1 15MG TAB IN MORNING AND 1 10MG TAB IN THE EVENING.
     Route: 048

REACTIONS (1)
  - Peripheral swelling [Unknown]
